FAERS Safety Report 5842975-X (Version None)
Quarter: 2008Q4

REPORT INFORMATION
  Report Type: 
  Country: None (occurrence: None)
  Receive Date: 20080811
  Receipt Date: 20080731
  Transmission Date: 20090506
  Serious: Yes (Death)
  Sender: FDA-Public Use
  Company Number: GXKR2008DK07247

PATIENT
  Age: 84 Year
  Sex: Male

DRUGS (5)
  1. PRAVASTATIN [Suspect]
     Indication: HYPERCHOLESTEROLAEMIA
     Dosage: ORAL
     Route: 048
  2. ESOMEPRAZOLE MAGNESIUM [Suspect]
     Indication: HYPERTENSION
     Dosage: ORAL
     Route: 048
  3. BENDROFLUMETHIAZIDE W/POTASSIUM CHLORIDE [Concomitant]
  4. SOTALOL HCL [Concomitant]
  5. MAGNYL   (ACETYLSALICYLIC ACID, MAGNESIUM OXIDE) [Concomitant]

REACTIONS (5)
  - ABASIA [None]
  - ATRIAL FIBRILLATION [None]
  - MYOSITIS [None]
  - PNEUMONIA [None]
  - RHABDOMYOLYSIS [None]
